FAERS Safety Report 9795942 (Version 3)
Quarter: 2014Q1

REPORT INFORMATION
  Report Type: Spontaneous
  Country: IT (occurrence: IT)
  Receive Date: 20140103
  Receipt Date: 20140228
  Transmission Date: 20141002
  Serious: Yes (Death)
  Sender: FDA-Public Use
  Company Number: IT-SA-2013SA136323

PATIENT
  Age: 89 Year
  Sex: Female

DRUGS (16)
  1. CLEXANE [Suspect]
     Indication: THROMBOSIS PROPHYLAXIS
     Dosage: STRENGTH: 4000 IU DOSE:1 UNIT(S)
     Route: 058
     Dates: start: 20130424, end: 20130505
  2. TICLOPIDINE HYDROCHLORIDE [Suspect]
     Indication: THROMBOSIS PROPHYLAXIS
     Route: 048
     Dates: start: 20120101, end: 20130424
  3. TORA-DOL [Suspect]
     Indication: PAIN
     Dosage: STRENGTH : 30 MG/ML DOSE:1 UNIT(S)
     Route: 042
     Dates: start: 20130425, end: 20130427
  4. TORA-DOL [Suspect]
     Indication: PAIN
     Dosage: DOSE:1 UNIT(S)
     Route: 042
     Dates: start: 20130501, end: 20130504
  5. BISOPROLOL HEMIFUMARATE [Concomitant]
     Indication: CARDIAC FAILURE
     Dosage: SINCE 6 MONTHS?STRENGTH: 1.25 MG
  6. NOVONORM [Concomitant]
     Indication: DIABETES MELLITUS
     Dosage: 20 MG
     Dates: start: 20130101, end: 20130430
  7. LASIX [Concomitant]
     Indication: HYPERTENSION
     Dosage: SINCE 1 YEAR?STRENGTH: 25 MG
  8. TRIATEC [Concomitant]
     Indication: HYPERTENSION
     Dosage: 10 MG DIVISIBLE TABLET DOSE:1 UNIT(S)
     Route: 048
  9. TORVAST [Concomitant]
     Dosage: STRENGTH: 10 MG?SINCE 6 MONTHS
  10. ZYLORIC [Concomitant]
     Dosage: 300 MG DIVISBLE TABLET?SINCE 18 MONTHS DOSE:5 UNIT(S)
     Route: 048
  11. TAVANIC [Concomitant]
     Indication: URINARY TRACT INFECTION
     Dosage: 500 IV 1 FLAC 100 ML DOSE:1 UNIT(S)
     Route: 042
     Dates: start: 20130430, end: 20130506
  12. ROCALTROL [Concomitant]
     Indication: OSTEOPOROSIS
     Dosage: 0.25 MCG?SINCE 16 MONTHS
  13. HALCION [Concomitant]
     Dosage: 125 MCG?SINCE 16 MONTHS
  14. ADALAT [Concomitant]
     Dosage: 10 MG?SINCE 1 YEAR
  15. ADALAT [Concomitant]
  16. NOVONORM [Concomitant]
     Dosage: STRENGTH 2 MG DOSE:2.5 NOT APPLICABLE

REACTIONS (5)
  - Hypotension [Fatal]
  - Anaemia [Fatal]
  - Gastric ulcer haemorrhage [Fatal]
  - Haematemesis [Fatal]
  - Melaena [Fatal]
